FAERS Safety Report 6207176-4 (Version None)
Quarter: 2009Q2

REPORT INFORMATION
  Report Type: 
  Country: None (occurrence: None)
  Receive Date: 20090528
  Receipt Date: 20090305
  Transmission Date: 20091009
  Serious: Yes (Death, Life-Threatening, Hospitalization, Other)
  Sender: FDA-Public Use
  Company Number: JP-PFIZER INC-2008100281

PATIENT
  Sex: Female
  Weight: 38 kg

DRUGS (2)
  1. SOLU-MEDROL [Suspect]
     Dosage: 0.5 MG, 1X/DAY FOR 3 DAYS
     Route: 042
     Dates: start: 20070101
  2. PREDNISOLONE AND PREDNISOLONE STEAGLATE [Suspect]
     Dosage: 20 MG, 1X/DAY
     Route: 048
     Dates: start: 20070101

REACTIONS (5)
  - BENIGN PANCREATIC NEOPLASM [None]
  - GLOMERULOSCLEROSIS [None]
  - MULTI-ORGAN FAILURE [None]
  - PANCREATIC NECROSIS [None]
  - PANCREATITIS ACUTE [None]
